FAERS Safety Report 10038885 (Version 1)
Quarter: 2014Q1

REPORT INFORMATION
  Report Type: Spontaneous
  Country: FR (occurrence: FR)
  Receive Date: 20140326
  Receipt Date: 20140326
  Transmission Date: 20141002
  Serious: Yes (Hospitalization)
  Sender: FDA-Public Use
  Company Number: FR-ASTRAZENECA-2014SE19239

PATIENT
  Age: 150 Day
  Sex: Male
  Weight: 6.2 kg

DRUGS (3)
  1. XYLOCAINE [Suspect]
     Indication: CIRCUMCISION
     Dosage: 10 MG, ONCE/SINGLE ADMINISTRATION, 2 ML
     Route: 058
     Dates: start: 20140215, end: 20140215
  2. EMOLLIENT [Concomitant]
     Indication: ECZEMA
  3. DERMOCORTICOIDS [Concomitant]
     Indication: ECZEMA

REACTIONS (3)
  - Cyanosis [Recovered/Resolved]
  - Grand mal convulsion [Recovered/Resolved]
  - Bradycardia [Recovered/Resolved]
